FAERS Safety Report 25830677 (Version 1)
Quarter: 2025Q3

REPORT INFORMATION
  Report Type: Spontaneous
  Country: US (occurrence: US)
  Receive Date: 20250922
  Receipt Date: 20250922
  Transmission Date: 20251020
  Serious: Yes (Other)
  Sender: QUAGEN PHARMACEUTICALS
  Company Number: US-QUAGEN-2025QUASPO00631

PATIENT
  Sex: Male

DRUGS (1)
  1. VALPROIC ACID [Suspect]
     Active Substance: VALPROIC ACID
     Indication: Seizure
     Route: 065

REACTIONS (6)
  - Gaze palsy [Unknown]
  - Hypoxia [Unknown]
  - Aspiration [Unknown]
  - Pneumonia [Unknown]
  - Increased bronchial secretion [Unknown]
  - Palpitations [Unknown]
